FAERS Safety Report 8954274 (Version 1)
Quarter: 2012Q4

REPORT INFORMATION
  Report Type: 
  Country: IT (occurrence: PT)
  Receive Date: 20121207
  Receipt Date: 20121207
  Transmission Date: 20130627
  Serious: Yes (Hospitalization)
  Sender: FDA-Public Use
  Company Number: PT-FRI-1000040762

PATIENT
  Age: 24 Year
  Sex: Female

DRUGS (1)
  1. FOSFOMYCIN [Suspect]
     Indication: CYSTITIS
     Dosage: 3 g
     Route: 048

REACTIONS (1)
  - Hepatitis acute [Recovered/Resolved]
